FAERS Safety Report 6722806-6 (Version None)
Quarter: 2010Q2

REPORT INFORMATION
  Report Type: 
  Country: None (occurrence: None)
  Receive Date: 20100512
  Receipt Date: 20100512
  Transmission Date: 20101027
  Serious: Yes (Other)
  Sender: FDA-Public Use
  Company Number: None

PATIENT
  Sex: Female
  Weight: 60.8 kg

DRUGS (1)
  1. CITALOPRAM HYDROBROMIDE [Suspect]
     Indication: ANXIETY
     Dosage: 10 MG -1/2 TABLET- DAILY PO
     Route: 048
     Dates: start: 20100329, end: 20100405

REACTIONS (7)
  - CHILLS [None]
  - CONVULSION [None]
  - EYE ROLLING [None]
  - FEELING DRUNK [None]
  - FOAMING AT MOUTH [None]
  - LOSS OF CONSCIOUSNESS [None]
  - TREMOR [None]
